FAERS Safety Report 24795987 (Version 1)
Quarter: 2025Q1

REPORT INFORMATION
  Report Type: Spontaneous
  Country: CN (occurrence: CN)
  Receive Date: 20250101
  Receipt Date: 20250101
  Transmission Date: 20250408
  Serious: Yes (Disabling, Other)
  Sender: TAKEDA
  Company Number: CN-TAKEDA-2024TUS129470

PATIENT
  Age: 61 Year
  Sex: Male

DRUGS (1)
  1. BRIGATINIB [Suspect]
     Active Substance: BRIGATINIB
     Indication: Lung carcinoma cell type unspecified recurrent
     Dosage: 180 MILLIGRAM, QD
     Dates: start: 20231113, end: 20240612

REACTIONS (2)
  - Gastric haemorrhage [Recovering/Resolving]
  - Rash [Recovering/Resolving]

NARRATIVE: CASE EVENT DATE: 20240612
